FAERS Safety Report 4527789-5 (Version None)
Quarter: 2004Q4

REPORT INFORMATION
  Report Type: 
  Country: None (occurrence: None)
  Receive Date: 20041123
  Receipt Date: 20031124
  Transmission Date: 20050328
  Serious: Yes (Other)
  Sender: FDA-Public Use
  Company Number: ATO-03-0748(0)

PATIENT
  Sex: Female

DRUGS (2)
  1. TRISENOX [Suspect]
     Indication: MYELODYSPLASTIC SYNDROME
     Dosage: (0.25 MG/KG,QD X 5 DAYS (LOAD)),IVI
  2. ASCORBIC ACID [Suspect]
     Indication: MYELODYSPLASTIC SYNDROME
     Dosage: (2 GM,DAILY), ORAL
     Route: 048

REACTIONS (1)
  - RENAL FAILURE ACUTE [None]
